FAERS Safety Report 18753631 (Version 1)
Quarter: 2021Q1

REPORT INFORMATION
  Report Type: Spontaneous
  Country: US (occurrence: US)
  Receive Date: 20210118
  Receipt Date: 20210118
  Transmission Date: 20210419
  Serious: No
  Sender: FDA-Public Use
  Company Number: US-009507513-2012USA011311

PATIENT
  Age: 23 Year
  Sex: Male

DRUGS (5)
  1. DOXORUBICIN [Concomitant]
     Active Substance: DOXORUBICIN
     Indication: EWING^S SARCOMA
     Dosage: 2 CYCLES
  2. TEMODAR [Suspect]
     Active Substance: TEMOZOLOMIDE
     Indication: EWING^S SARCOMA
     Dosage: 8 CYCLES
  3. DOXORUBICIN (+) IFOSFAMIDE (+) VINCRISTINE SULFATE [Concomitant]
     Indication: EWING^S SARCOMA
     Dosage: 1 CYCLE
  4. VINCRISTINE SULFATE. [Concomitant]
     Active Substance: VINCRISTINE SULFATE
     Indication: EWING^S SARCOMA
     Dosage: 2 CYCLES
  5. CYCLOPHOSPHAMIDE (+) DACTINOMYCIN (+) VINCRISTINE SULFATE [Concomitant]
     Indication: EWING^S SARCOMA
     Dosage: 3 CYCLES

REACTIONS (1)
  - Product use in unapproved indication [Unknown]
